FAERS Safety Report 6344030-1 (Version None)
Quarter: 2009Q3

REPORT INFORMATION
  Report Type: 
  Country: None (occurrence: None)
  Receive Date: 20090908
  Receipt Date: 20090826
  Transmission Date: 20100115
  Serious: Yes (Other)
  Sender: FDA-Public Use
  Company Number: US-PFIZER INC-2009263481

PATIENT
  Sex: Male

DRUGS (7)
  1. XANAX [Suspect]
     Indication: CONVULSION
     Dosage: 0.5 MG, UNK
     Route: 048
     Dates: start: 19840101
  2. XANAX [Suspect]
     Indication: ANXIETY
  3. SIMVASTATIN [Concomitant]
  4. LISINOPRIL [Concomitant]
  5. TOPROL-XL [Concomitant]
  6. TYLENOL (CAPLET) [Concomitant]
  7. ASPIRIN [Concomitant]

REACTIONS (4)
  - DIABETES MELLITUS [None]
  - DRUG DOSE OMISSION [None]
  - IRRITABILITY [None]
  - MYOCARDIAL INFARCTION [None]
